FAERS Safety Report 24751315 (Version 5)
Quarter: 2025Q2

REPORT INFORMATION
  Report Type: Report from Study
  Country: US (occurrence: US)
  Receive Date: 20241219
  Receipt Date: 20250613
  Transmission Date: 20250717
  Serious: Yes (Other)
  Sender: TAKEDA
  Company Number: US-TAKEDA-2024TUS097620AA

PATIENT
  Sex: Female
  Weight: 75 kg

DRUGS (16)
  1. HUMAN IMMUNOGLOBULIN G [Suspect]
     Active Substance: HUMAN IMMUNOGLOBULIN G
     Indication: Immune system disorder
     Dosage: 10 GRAM, 1/WEEK
  2. HUMAN IMMUNOGLOBULIN G [Suspect]
     Active Substance: HUMAN IMMUNOGLOBULIN G
     Indication: Hypergammaglobulinaemia
  3. ACETAMINOPHEN [Concomitant]
     Active Substance: ACETAMINOPHEN
  4. EPINEPHRINE [Concomitant]
     Active Substance: EPINEPHRINE
  5. NASACORT [Concomitant]
     Active Substance: TRIAMCINOLONE ACETONIDE
  6. METOPROLOL TARTRATE [Concomitant]
     Active Substance: METOPROLOL TARTRATE
  7. FLECAINIDE ACETATE [Concomitant]
     Active Substance: FLECAINIDE ACETATE
  8. ELIQUIS [Concomitant]
     Active Substance: APIXABAN
  9. LIDOCAINE [Concomitant]
     Active Substance: LIDOCAINE
  10. MECLIZINE HYDROCHLORIDE [Concomitant]
     Active Substance: MECLIZINE HYDROCHLORIDE
  11. ZETIA [Concomitant]
     Active Substance: EZETIMIBE
  12. LEVOTHYROXINE SODIUM [Concomitant]
     Active Substance: LEVOTHYROXINE SODIUM
  13. DIPHENHYDRAMINE HYDROCHLORIDE [Concomitant]
     Active Substance: DIPHENHYDRAMINE HYDROCHLORIDE
  14. ESTRACE [Concomitant]
     Active Substance: ESTRADIOL
  15. MOUNJARO [Concomitant]
     Active Substance: TIRZEPATIDE
  16. PROGESTERONE [Concomitant]
     Active Substance: PROGESTERONE

REACTIONS (10)
  - Skin cancer [Unknown]
  - Hernia [Unknown]
  - Illness [Unknown]
  - Product use issue [Unknown]
  - Multiple allergies [Recovering/Resolving]
  - Upper respiratory tract infection [Unknown]
  - Sinusitis [Unknown]
  - Seasonal allergy [Unknown]
  - Product dose omission issue [Unknown]
  - Inappropriate schedule of product administration [Unknown]
